FAERS Safety Report 18342776 (Version 1)
Quarter: 2020Q4

REPORT INFORMATION
  Report Type: Spontaneous
  Country: TW (occurrence: TW)
  Receive Date: 20201005
  Receipt Date: 20201005
  Transmission Date: 20210113
  Serious: Yes (Hospitalization, Other)
  Sender: FDA-Public Use
  Company Number: TW-AXELLIA-003392

PATIENT
  Age: 62 Year
  Sex: Male

DRUGS (4)
  1. VORICONAZOLE. [Suspect]
     Active Substance: VORICONAZOLE
     Indication: BRONCHOPULMONARY ASPERGILLOSIS
  2. MYCOPHENOLIC ACID. [Concomitant]
     Active Substance: MYCOPHENOLIC ACID
     Indication: IMMUNOSUPPRESSANT DRUG THERAPY
  3. CASPOFUNGIN [Concomitant]
     Active Substance: CASPOFUNGIN
  4. TACROLIMUS. [Interacting]
     Active Substance: TACROLIMUS
     Indication: IMMUNOSUPPRESSANT DRUG THERAPY
     Dosage: REDUCED FROM 1 MG/DAY TO?0.5 MG/TWICE WEEKLY

REACTIONS (4)
  - Acute kidney injury [Recovered/Resolved]
  - Drug interaction [Unknown]
  - Drug intolerance [Unknown]
  - Hepatotoxicity [Recovered/Resolved]
